FAERS Safety Report 9536370 (Version 1)
Quarter: 2013Q2

REPORT INFORMATION
  Report Type: Spontaneous
  Country: US (occurrence: None)
  Receive Date: 20130507
  Receipt Date: 20130507
  Transmission Date: 20140414
  Serious: Yes (Hospitalization)
  Sender: FDA-Public Use
  Company Number: PHEH2013US001358

PATIENT
  Age: 65 Year
  Sex: Female

DRUGS (1)
  1. AFINITOR (RAD) [Suspect]
     Indication: BREAST NEOPLASM
     Route: 048
     Dates: start: 20121121, end: 20121220

REACTIONS (4)
  - Back pain [None]
  - Urticaria [None]
  - Arthralgia [None]
  - Dyspnoea [None]
